FAERS Safety Report 11093927 (Version 1)
Quarter: 2015Q2

REPORT INFORMATION
  Report Type: Report from Study
  Country: US (occurrence: US)
  Receive Date: 20150506
  Receipt Date: 20150506
  Transmission Date: 20150821
  Serious: Yes (Hospitalization, Other)
  Sender: FDA-Public Use
  Company Number: US-BAXTER-2015BAX023574

PATIENT
  Sex: Female

DRUGS (4)
  1. GAMMAGARD S/D [Suspect]
     Active Substance: HUMAN IMMUNOGLOBULIN G
     Indication: BLOOD IMMUNOGLOBULIN A ABNORMAL
     Route: 042
  2. TYLENOL [Concomitant]
     Active Substance: ACETAMINOPHEN
     Indication: PREMEDICATION
     Route: 065
  3. BENADRYL [Concomitant]
     Active Substance: DIPHENHYDRAMINE HYDROCHLORIDE
     Indication: PREMEDICATION
     Route: 065
  4. COMPAZINE [Concomitant]
     Active Substance: PROCHLORPERAZINE MALEATE
     Indication: PREMEDICATION
     Route: 065

REACTIONS (14)
  - Kidney infection [Recovering/Resolving]
  - Headache [Recovering/Resolving]
  - Brain oedema [Recovering/Resolving]
  - Loss of consciousness [Recovering/Resolving]
  - Memory impairment [Recovering/Resolving]
  - Blood pressure increased [Recovering/Resolving]
  - Anaphylactic shock [Recovering/Resolving]
  - Amnesia [Recovering/Resolving]
  - Pain [Recovering/Resolving]
  - Thinking abnormal [Recovering/Resolving]
  - Feeling abnormal [Recovering/Resolving]
  - Chills [Recovering/Resolving]
  - Hypersomnia [Recovering/Resolving]
  - Wrong technique in drug usage process [Unknown]
